FAERS Safety Report 20298891 (Version 6)
Quarter: 2022Q1

REPORT INFORMATION
  Report Type: Report from Study
  Country: US (occurrence: US)
  Receive Date: 20220105
  Receipt Date: 20220302
  Transmission Date: 20220423
  Serious: Yes (Life-Threatening, Other)
  Sender: FDA-Public Use
  Company Number: NVSC2022US001200

PATIENT
  Age: 73 Year
  Sex: Male

DRUGS (2)
  1. PROMACTA [Suspect]
     Active Substance: ELTROMBOPAG OLAMINE
     Indication: Product used for unknown indication
     Dosage: 150 MG, QD
     Route: 065
  2. CYCLOSPORINE [Concomitant]
     Active Substance: CYCLOSPORINE
     Indication: Product used for unknown indication
     Dosage: 250 MG, QD
     Route: 065

REACTIONS (16)
  - Feeling abnormal [Unknown]
  - Arrhythmia [Unknown]
  - Atrial fibrillation [Unknown]
  - Staphylococcal sepsis [Unknown]
  - Myocardial infarction [Unknown]
  - Cardiac disorder [Unknown]
  - Speech sound disorder [Unknown]
  - Cerebral disorder [Unknown]
  - Amnesia [Unknown]
  - SARS-CoV-2 test positive [Unknown]
  - Gastrooesophageal reflux disease [Unknown]
  - Hypertension [Unknown]
  - Benign prostatic hyperplasia [Unknown]
  - Dyspnoea exertional [Unknown]
  - Constipation [Unknown]
  - Platelet count increased [Unknown]

NARRATIVE: CASE EVENT DATE: 20171001
